FAERS Safety Report 6177042-1 (Version None)
Quarter: 2009Q2

REPORT INFORMATION
  Report Type: 
  Country: None (occurrence: None)
  Receive Date: 20090501
  Receipt Date: 20090424
  Transmission Date: 20091009
  Serious: Yes (Hospitalization)
  Sender: FDA-Public Use
  Company Number: DE-VALEANT-2009VX000703

PATIENT
  Age: 71 Year
  Sex: Male

DRUGS (1)
  1. DALMADORM ^ICN^ [Suspect]
     Route: 048
     Dates: start: 20090410

REACTIONS (3)
  - INTENTIONAL OVERDOSE [None]
  - SOMNOLENCE [None]
  - SUICIDE ATTEMPT [None]
